FAERS Safety Report 6033836-4 (Version None)
Quarter: 2009Q1

REPORT INFORMATION
  Report Type: 
  Country: None (occurrence: None)
  Receive Date: 20090112
  Receipt Date: 20090105
  Transmission Date: 20090719
  Serious: Yes (Other)
  Sender: FDA-Public Use
  Company Number: US-WYE-H06289108

PATIENT
  Sex: Female
  Weight: 86.26 kg

DRUGS (12)
  1. ADVIL PM [Suspect]
     Indication: INSOMNIA
     Dosage: 2 CAPLETS DAILY AT BEDTIME
     Route: 048
     Dates: start: 20081004
  2. ESTRACE [Concomitant]
     Indication: DRUG USE FOR UNKNOWN INDICATION
     Dosage: 1MG TABLET DAILY
     Route: 048
     Dates: start: 20080812
  3. LISINOPRIL [Concomitant]
     Indication: DRUG USE FOR UNKNOWN INDICATION
     Dosage: UNKNOWN
     Route: 048
  4. NITROFURANTOIN [Concomitant]
     Indication: DRUG USE FOR UNKNOWN INDICATION
     Dosage: 100 MG CAPSULE TWICE DAILY
     Route: 048
     Dates: start: 20080926
  5. ATENOLOL [Concomitant]
     Indication: DRUG USE FOR UNKNOWN INDICATION
     Dosage: 50 MG TABLET DAILY
     Route: 048
     Dates: start: 20041018
  6. SULFAMETHOXAZOLE AND TRIMETHOPRIM [Concomitant]
     Indication: DRUG USE FOR UNKNOWN INDICATION
     Dosage: 160-180 MG TABLET TWICE DAILY
     Route: 048
     Dates: start: 20080526
  7. CEPHALEXIN [Concomitant]
     Indication: DRUG USE FOR UNKNOWN INDICATION
     Route: 048
     Dates: start: 20080522
  8. CYCLOBENZAPRINE HCL [Concomitant]
     Indication: DRUG USE FOR UNKNOWN INDICATION
     Dosage: 10 MG TABLET DAILY AT BEDTIME
     Route: 048
     Dates: start: 20080827
  9. TRIAMCINOLONE ACETONIDE [Concomitant]
     Indication: DRUG USE FOR UNKNOWN INDICATION
     Dosage: 40 MG/ML
     Route: 014
     Dates: start: 20070816
  10. ACETYLSALICYLIC ACID [Concomitant]
     Dosage: 81 MG TABLET DAILY
     Route: 048
     Dates: start: 20070625
  11. PRILOSEC [Concomitant]
     Indication: DRUG USE FOR UNKNOWN INDICATION
     Dosage: 20 MG CAPSULE DAILY
     Route: 048
     Dates: start: 20070709
  12. CIPROFLOXACIN [Concomitant]
     Indication: DRUG USE FOR UNKNOWN INDICATION
     Route: 048
     Dates: start: 20080723

REACTIONS (7)
  - DYSPNOEA [None]
  - HYPERSENSITIVITY [None]
  - LIP SWELLING [None]
  - PALPITATIONS [None]
  - TACHYCARDIA [None]
  - THROAT TIGHTNESS [None]
  - URTICARIA [None]
